FAERS Safety Report 14249927 (Version 1)
Quarter: 2017Q4

REPORT INFORMATION
  Report Type: Spontaneous
  Country: IN (occurrence: IN)
  Receive Date: 20171205
  Receipt Date: 20171205
  Transmission Date: 20180321
  Serious: Yes (Other)
  Sender: FDA-Public Use
  Company Number: IN-SUN PHARMACEUTICAL INDUSTRIES LTD-2017R1-156039

PATIENT
  Age: 24 Year
  Sex: Male

DRUGS (1)
  1. TRIAMCINOLONE [Suspect]
     Active Substance: TRIAMCINOLONE
     Indication: URTICARIA
     Dosage: UNK
     Route: 030

REACTIONS (2)
  - Skin ulcer [Recovered/Resolved]
  - Embolia cutis medicamentosa [Unknown]
